FAERS Safety Report 9245471 (Version 1)
Quarter: 2013Q2

REPORT INFORMATION
  Report Type: Report from Study
  Country: US (occurrence: US)
  Receive Date: 20130422
  Receipt Date: 20130422
  Transmission Date: 20140414
  Serious: Yes (Life-Threatening)
  Sender: FDA-Public Use
  Company Number: US-ROCHE-1212397

PATIENT
  Sex: Female

DRUGS (3)
  1. LUCENTIS [Suspect]
     Indication: AGE-RELATED MACULAR DEGENERATION
     Route: 065
  2. AVASTIN [Suspect]
     Indication: AGE-RELATED MACULAR DEGENERATION
     Route: 047
  3. COMBIGAN [Concomitant]
     Dosage: 0.2/0.5 % SOLUTION
     Route: 047

REACTIONS (3)
  - Disease progression [Not Recovered/Not Resolved]
  - Eye haemorrhage [Unknown]
  - Intraocular pressure increased [Unknown]
